FAERS Safety Report 11080689 (Version 2)
Quarter: 2015Q2

REPORT INFORMATION
  Report Type: Spontaneous
  Country: JP (occurrence: JP)
  Receive Date: 20150501
  Receipt Date: 20150520
  Transmission Date: 20150821
  Serious: Yes (Other)
  Sender: FDA-Public Use
  Company Number: JP-ELI_LILLY_AND_COMPANY-JP201504009139

PATIENT
  Age: 65 Year
  Sex: Female

DRUGS (1)
  1. STRATTERA [Suspect]
     Active Substance: ATOMOXETINE HYDROCHLORIDE
     Indication: ATTENTION DEFICIT/HYPERACTIVITY DISORDER
     Route: 048

REACTIONS (6)
  - Nausea [Unknown]
  - Suicide attempt [Unknown]
  - Abdominal distension [Unknown]
  - Headache [Recovering/Resolving]
  - Hypophagia [Unknown]
  - Vomiting [Unknown]
